FAERS Safety Report 21944414 (Version 1)
Quarter: 2023Q1

REPORT INFORMATION
  Report Type: Spontaneous
  Country: TW (occurrence: TW)
  Receive Date: 20230202
  Receipt Date: 20230202
  Transmission Date: 20230418
  Serious: Yes (Other)
  Sender: FDA-Public Use
  Company Number: TW-AMGEN-TWNSP2023014486

PATIENT
  Age: 63 Year
  Sex: Female

DRUGS (5)
  1. PROLIA [Suspect]
     Active Substance: DENOSUMAB
     Indication: Hyperparathyroidism secondary
     Dosage: UNK
     Route: 065
  2. PROLIA [Suspect]
     Active Substance: DENOSUMAB
     Indication: Off label use
  3. CINACALCET HYDROCHLORIDE [Suspect]
     Active Substance: CINACALCET HYDROCHLORIDE
     Indication: Hyperparathyroidism secondary
     Dosage: UNK
     Route: 065
  4. VITAMIN D [Concomitant]
     Active Substance: VITAMIN D NOS
     Indication: Supplementation therapy
     Dosage: UNK
     Route: 065
  5. CALCIUM CARBONATE [Concomitant]
     Active Substance: CALCIUM CARBONATE
     Indication: Supplementation therapy
     Dosage: UNK
     Route: 065

REACTIONS (9)
  - Hungry bone syndrome [Unknown]
  - Parathyroid tumour benign [Unknown]
  - Drug ineffective for unapproved indication [Unknown]
  - Hyperphosphataemia [Recovered/Resolved]
  - Hyperparathyroidism [Recovered/Resolved]
  - Rotator cuff syndrome [Unknown]
  - Off label use [Unknown]
  - Hypercalcaemia [Recovered/Resolved]
  - Drug ineffective [Unknown]
